FAERS Safety Report 19062171 (Version 1)
Quarter: 2021Q1

REPORT INFORMATION
  Report Type: Spontaneous
  Country: CN (occurrence: CN)
  Receive Date: 20210326
  Receipt Date: 20210326
  Transmission Date: 20210420
  Serious: Yes (Hospitalization)
  Sender: FDA-Public Use
  Company Number: NVSC2021CN064775

PATIENT
  Age: 79 Year
  Sex: Female

DRUGS (1)
  1. ENTRESTO [Suspect]
     Active Substance: SACUBITRIL\VALSARTAN
     Indication: PRODUCT USED FOR UNKNOWN INDICATION
     Dosage: 0.5 DF(25MG), UNKNOWN
     Route: 065

REACTIONS (5)
  - Product use issue [Unknown]
  - Tachypnoea [Unknown]
  - Wrong technique in product usage process [Unknown]
  - Productive cough [Unknown]
  - Chest discomfort [Unknown]
